FAERS Safety Report 8215389-5 (Version None)
Quarter: 2012Q1

REPORT INFORMATION
  Report Type: 
  Country: None (occurrence: None)
  Receive Date: 20120316
  Receipt Date: 20120312
  Transmission Date: 20120608
  Serious: Yes (Other)
  Sender: FDA-Public Use
  Company Number: US-PFIZER INC-2012065244

PATIENT
  Sex: Male
  Weight: 74.83 kg

DRUGS (5)
  1. NEXIUM [Concomitant]
     Indication: GASTROOESOPHAGEAL REFLUX DISEASE
     Dosage: UNK
  2. WARFARIN [Concomitant]
     Indication: THROMBOSIS
     Dosage: UNK
  3. XALATAN [Suspect]
     Indication: GLAUCOMA
     Dosage: UNK, 1X/DAY
     Route: 047
     Dates: end: 20110101
  4. TRAVATAN [Suspect]
     Indication: GLAUCOMA
     Dosage: UNK, 1X/DAY
     Route: 047
     Dates: start: 20110101
  5. COMBIGAN [Concomitant]
     Indication: GLAUCOMA
     Dosage: UNK

REACTIONS (3)
  - BLEPHARITIS [None]
  - VISION BLURRED [None]
  - EYELID MARGIN CRUSTING [None]
